FAERS Safety Report 9691775 (Version 3)
Quarter: 2013Q4

REPORT INFORMATION
  Report Type: Spontaneous
  Country: SE (occurrence: SE)
  Receive Date: 20131115
  Receipt Date: 20131204
  Transmission Date: 20140711
  Serious: Yes (Life-Threatening, Hospitalization)
  Sender: FDA-Public Use
  Company Number: SE-ABBVIE-13X-150-1123017-00

PATIENT
  Age: 34 Year
  Sex: Female

DRUGS (8)
  1. ERGENYL RETARD [Suspect]
     Indication: PRODUCT USED FOR UNKNOWN INDICATION
     Dosage: EXTENDED RELEASE; DAILY
     Route: 065
     Dates: start: 20050925, end: 20121014
  2. IKTORIVIL [Suspect]
     Indication: PRODUCT USED FOR UNKNOWN INDICATION
     Dosage: DAILY
     Route: 048
     Dates: start: 20060214, end: 20130115
  3. ABILIFY [Concomitant]
     Indication: PRODUCT USED FOR UNKNOWN INDICATION
  4. OMEPRAZOLE [Concomitant]
     Indication: PRODUCT USED FOR UNKNOWN INDICATION
  5. PANCREATIN [Concomitant]
     Indication: PRODUCT USED FOR UNKNOWN INDICATION
  6. PROMETHAZINE HYDROCHLORIDE [Concomitant]
     Indication: PRODUCT USED FOR UNKNOWN INDICATION
  7. BIPERIDEN HYDROCHLORIDE [Concomitant]
     Indication: PRODUCT USED FOR UNKNOWN INDICATION
  8. ZIPRASIDONE HYDROCHLORIDE [Concomitant]
     Indication: PRODUCT USED FOR UNKNOWN INDICATION

REACTIONS (13)
  - Reading disorder [Not Recovered/Not Resolved]
  - Mood swings [Not Recovered/Not Resolved]
  - Depressed mood [Not Recovered/Not Resolved]
  - Psychotic disorder [Not Recovered/Not Resolved]
  - Speech disorder [Not Recovered/Not Resolved]
  - Hallucination, auditory [Not Recovered/Not Resolved]
  - Disturbance in attention [Not Recovered/Not Resolved]
  - Suicidal ideation [Not Recovered/Not Resolved]
  - Fatigue [Not Recovered/Not Resolved]
  - Weight increased [Not Recovered/Not Resolved]
  - Withdrawal syndrome [Not Recovered/Not Resolved]
  - Memory impairment [Unknown]
  - Cognitive disorder [Unknown]
